FAERS Safety Report 8411593-1 (Version None)
Quarter: 2012Q2

REPORT INFORMATION
  Report Type: 
  Country: None (occurrence: None)
  Receive Date: 20120605
  Receipt Date: 20120511
  Transmission Date: 20120825
  Serious: No
  Sender: FDA-Public Use
  Company Number: US-AMGEN-USASP2012028660

PATIENT
  Age: 42 Year
  Sex: Female

DRUGS (1)
  1. ENBREL [Suspect]
     Indication: PSORIATIC ARTHROPATHY
     Dosage: 50 MG, QWK
     Dates: start: 20120427

REACTIONS (11)
  - DISTURBANCE IN ATTENTION [None]
  - ASTHENIA [None]
  - UPPER RESPIRATORY TRACT CONGESTION [None]
  - FATIGUE [None]
  - DYSPNOEA [None]
  - LYMPHADENOPATHY [None]
  - PRODUCTIVE COUGH [None]
  - SOMNOLENCE [None]
  - NASAL CONGESTION [None]
  - RHINORRHOEA [None]
  - SINUSITIS [None]
